FAERS Safety Report 4965120-1 (Version None)
Quarter: 2006Q1

REPORT INFORMATION
  Report Type: 
  Country: None (occurrence: None)
  Receive Date: 20060207
  Receipt Date: 20060120
  Transmission Date: 20060701
  Serious: Yes (Life-Threatening, Hospitalization, Disabling)
  Sender: FDA-Public Use
  Company Number: 248704

PATIENT
  Age: 50 Year
  Sex: Female
  Weight: 76.6 kg

DRUGS (13)
  1. NOVOLOG [Suspect]
     Indication: DIABETES MELLITUS INSULIN-DEPENDENT
     Dosage: 16.8 IU + SS, QD, SUBCUTAN.-PUMP
     Route: 058
     Dates: start: 20040511
  2. ANTI-DIABETICS() [Suspect]
     Indication: DIABETES MELLITUS INSULIN-DEPENDENT
  3. ASPIRIN [Concomitant]
  4. PLAVIX [Concomitant]
  5. CRESTOR [Concomitant]
  6. TOPROL-XL [Concomitant]
  7. NEURONTIN [Concomitant]
  8. OXYCONTIN [Concomitant]
  9. SYNTHROID [Concomitant]
  10. LEXAPRO [Concomitant]
  11. WELLBUTRIN [Concomitant]
  12. XANAX [Concomitant]
  13. ACTINAL (CYPROHEPTADINE HYDROCHLORIDE) [Concomitant]

REACTIONS (2)
  - BLOOD GLUCOSE INCREASED [None]
  - HYPOGLYCAEMIC COMA [None]
